FAERS Safety Report 16985774 (Version 1)
Quarter: 2019Q4

REPORT INFORMATION
  Report Type: Spontaneous
  Country: US (occurrence: US)
  Receive Date: 20191101
  Receipt Date: 20191101
  Transmission Date: 20200122
  Serious: Yes (Other)
  Sender: FDA-Public Use
  Company Number: NVSC2019US021568

PATIENT
  Age: 66 Year
  Sex: Female

DRUGS (2)
  1. NAFCILLIN [Suspect]
     Active Substance: NAFCILLIN SODIUM
     Indication: ENDOCARDITIS
  2. NAFCILLIN [Suspect]
     Active Substance: NAFCILLIN SODIUM
     Indication: BACTERAEMIA
     Dosage: 2 G, Q4H
     Route: 065

REACTIONS (2)
  - Product use in unapproved indication [Unknown]
  - Febrile neutropenia [Unknown]
